FAERS Safety Report 11192757 (Version 2)
Quarter: 2015Q3

REPORT INFORMATION
  Report Type: Spontaneous
  Country: US (occurrence: US)
  Receive Date: 20150616
  Receipt Date: 20150713
  Transmission Date: 20151125
  Serious: No
  Sender: FDA-Public Use
  Company Number: US-ASTRAZENECA-2015SE56260

PATIENT
  Sex: Male

DRUGS (1)
  1. PULMICORT FLEXHALER [Suspect]
     Active Substance: BUDESONIDE
     Indication: BRONCHITIS
     Route: 055
     Dates: start: 20150604

REACTIONS (6)
  - Physical product label issue [Unknown]
  - Circumstance or information capable of leading to medication error [Unknown]
  - Device failure [Unknown]
  - Drug ineffective [Unknown]
  - Malaise [Unknown]
  - Off label use [Unknown]
